FAERS Safety Report 20911579 (Version 1)
Quarter: 2022Q2

REPORT INFORMATION
  Report Type: Spontaneous
  Country: US (occurrence: US)
  Receive Date: 20220603
  Receipt Date: 20220603
  Transmission Date: 20220721
  Serious: No
  Sender: FDA-Public Use
  Company Number: US-ORGANON-O2206USA000158

PATIENT
  Age: 78 Year
  Sex: Male

DRUGS (8)
  1. REMERON [Suspect]
     Active Substance: MIRTAZAPINE
     Dosage: UNK
     Route: 048
  2. QUETIAPINE [Suspect]
     Active Substance: QUETIAPINE
     Dosage: UNK
  3. OLANZAPINE [Suspect]
     Active Substance: OLANZAPINE
     Dosage: UNK
  4. BUSPIRONE [Suspect]
     Active Substance: BUSPIRONE HYDROCHLORIDE
     Dosage: UNK
  5. LORAZEPAM [Suspect]
     Active Substance: LORAZEPAM
     Dosage: UNK
  6. ZOLPIDEM [Suspect]
     Active Substance: ZOLPIDEM TARTRATE
     Dosage: UNK
  7. DONEPEZIL [Suspect]
     Active Substance: DONEPEZIL
     Dosage: UNK
  8. RIVASTIGMINE [Suspect]
     Active Substance: RIVASTIGMINE
     Dosage: UNK

REACTIONS (1)
  - Drug ineffective [Unknown]
